FAERS Safety Report 20152640 (Version 2)
Quarter: 2021Q4

REPORT INFORMATION
  Report Type: Report from Study
  Country: TW (occurrence: TW)
  Receive Date: 20211206
  Receipt Date: 20211221
  Transmission Date: 20220303
  Serious: Yes (Hospitalization, Other)
  Sender: FDA-Public Use
  Company Number: TW-BoehringerIngelheim-2021-BI-140994

PATIENT
  Age: 71 Year
  Sex: Male
  Weight: 57 kg

DRUGS (3)
  1. AFATINIB [Suspect]
     Active Substance: AFATINIB
     Indication: Oesophageal squamous cell carcinoma
     Route: 048
     Dates: start: 20211110, end: 20211128
  2. INVESTIGATIONAL PRODUCT [Suspect]
     Active Substance: INVESTIGATIONAL PRODUCT
     Indication: Oesophageal squamous cell carcinoma
     Route: 042
     Dates: start: 20211110, end: 20211110
  3. NEXIUM [Concomitant]
     Active Substance: ESOMEPRAZOLE MAGNESIUM
     Indication: Gastritis
     Route: 048
     Dates: start: 20211110

REACTIONS (2)
  - Jaundice [Recovered/Resolved with Sequelae]
  - Pancreatitis [Recovered/Resolved with Sequelae]

NARRATIVE: CASE EVENT DATE: 20211129
